FAERS Safety Report 8851267 (Version 1)
Quarter: 2012Q4

REPORT INFORMATION
  Report Type: 
  Country: GB (occurrence: GB)
  Receive Date: 20121019
  Receipt Date: 20121019
  Transmission Date: 20130627
  Serious: Yes (Hospitalization)
  Sender: FDA-Public Use
  Company Number: PHHY2012GB089931

PATIENT
  Age: 71 Year
  Sex: Female
  Weight: 46.71 kg

DRUGS (10)
  1. SERTRALINE [Suspect]
     Indication: DEPRESSION
     Dosage: 50 mg, QD
     Route: 048
     Dates: start: 20120830, end: 20120926
  2. SERTRALINE [Suspect]
     Dosage: 100 mg, QD
     Route: 048
     Dates: start: 20120926, end: 20120928
  3. CANDESARTAN CILEXETIL [Concomitant]
     Dosage: 8 mg, UNK
  4. LACRI-LUBE [Concomitant]
  5. BECLOMETASONE [Concomitant]
     Route: 045
  6. SODIUM HYALURONATE [Concomitant]
  7. AMITRIPTYLINE [Concomitant]
     Dosage: 10 mg, QD
  8. DOXYCYCLINE HYCLATE [Concomitant]
     Dosage: 100 mg, UNK
  9. DIAZEPAM [Concomitant]
     Dosage: 5 mg, UNK
  10. HALOPERIDOL [Concomitant]

REACTIONS (6)
  - Autonomic nervous system imbalance [Unknown]
  - Miosis [Unknown]
  - Hyponatraemia [Unknown]
  - Confusional state [Unknown]
  - Hallucinations, mixed [Unknown]
  - Agitation [Unknown]
